FAERS Safety Report 9066760 (Version 1)
Quarter: 2013Q1

REPORT INFORMATION
  Report Type: Spontaneous
  Country: US (occurrence: US)
  Receive Date: 20130214
  Receipt Date: 20130214
  Transmission Date: 20140127
  Serious: Yes (Disabling)
  Sender: FDA-Public Use
  Company Number: US-GLAXOSMITHKLINE-A1011457A

PATIENT
  Age: 32 Year
  Sex: Female

DRUGS (6)
  1. LAMICTAL XR [Suspect]
     Indication: PARTIAL SEIZURES
     Dosage: 200MG PER DAY
     Route: 048
  2. SYNTHROID [Concomitant]
  3. PRO-AIR [Concomitant]
  4. ALLEGRA [Concomitant]
  5. OMEPRAZOLE [Concomitant]
  6. VESICARE [Concomitant]

REACTIONS (4)
  - Dental caries [Not Recovered/Not Resolved]
  - Loose tooth [Not Recovered/Not Resolved]
  - Tooth extraction [Not Recovered/Not Resolved]
  - Bruxism [Not Recovered/Not Resolved]
